FAERS Safety Report 7223049-2 (Version None)
Quarter: 2011Q1

REPORT INFORMATION
  Report Type: 
  Country: None (occurrence: None)
  Receive Date: 20110112
  Receipt Date: 20110104
  Transmission Date: 20110831
  Serious: Yes (Hospitalization, Disabling)
  Sender: FDA-Public Use
  Company Number: JP-MERCK-1101USA00274

PATIENT
  Age: 56 Year
  Sex: Female
  Weight: 53 kg

DRUGS (3)
  1. AMARYL [Concomitant]
     Route: 048
  2. JANUVIA [Suspect]
     Indication: DIABETES MELLITUS
     Route: 048
     Dates: start: 20100327, end: 20100505
  3. LIPITOR [Concomitant]
     Route: 048

REACTIONS (3)
  - COUGH [None]
  - DECREASED APPETITE [None]
  - CARDIOMEGALY [None]
